FAERS Safety Report 8740688 (Version 2)
Quarter: 2013Q3

REPORT INFORMATION
  Report Type: Spontaneous
  Country: US (occurrence: US)
  Receive Date: 20120823
  Receipt Date: 20130809
  Transmission Date: 20140515
  Serious: No
  Sender: FDA-Public Use
  Company Number: US-AMGEN-USASP2012045830

PATIENT
  Age: 56 Year
  Sex: Female
  Weight: 86.17 kg

DRUGS (9)
  1. NEUPOGEN [Suspect]
     Indication: PRODUCT USED FOR UNKNOWN INDICATION
     Dosage: UNK
  2. PEGASYS [Suspect]
     Indication: CHRONIC HEPATITIS C
     Dosage: 90 MUG, QWK
     Dates: start: 20111220
  3. PEGASYS [Suspect]
     Dosage: 90 MUG, QWK
  4. RIBASPHERE [Suspect]
     Indication: CHRONIC HEPATITIS C
     Dosage: 800 MG, QD
     Dates: start: 20111220
  5. RIBASPHERE [Suspect]
     Dosage: 1200 MG, QD
     Dates: start: 20111220
  6. BOCEPREVIR [Suspect]
     Indication: CHRONIC HEPATITIS C
     Dosage: 4 DF, TID
     Route: 048
  7. AMLODIPINE [Concomitant]
  8. KLOR-CON [Concomitant]
     Dosage: UNK
  9. IBUPROFEN [Concomitant]
     Dosage: UNK

REACTIONS (8)
  - White blood cell count decreased [Unknown]
  - Weight decreased [Unknown]
  - Headache [Unknown]
  - Anaemia [Unknown]
  - Dyspnoea [Unknown]
  - Vomiting [Unknown]
  - Weight increased [Unknown]
  - Generalised oedema [Unknown]
